FAERS Safety Report 5988584-3 (Version None)
Quarter: 2008Q4

REPORT INFORMATION
  Report Type: 
  Country: None (occurrence: None)
  Receive Date: 20081204
  Receipt Date: 20081202
  Transmission Date: 20090506
  Serious: Yes (Other)
  Sender: FDA-Public Use
  Company Number: AR_73/08

PATIENT
  Age: 46 Year
  Sex: Male

DRUGS (1)
  1. ALBUMIN (HUMAN) [Suspect]

REACTIONS (1)
  - ANAPHYLACTIC REACTION [None]
